FAERS Safety Report 6687127-9 (Version None)
Quarter: 2010Q2

REPORT INFORMATION
  Report Type: 
  Country: None (occurrence: None)
  Receive Date: 20100419
  Receipt Date: 20100405
  Transmission Date: 20101027
  Serious: Yes (Hospitalization)
  Sender: FDA-Public Use
  Company Number: HK-ROCHE-695575

PATIENT
  Age: 43 Year
  Sex: Female

DRUGS (5)
  1. MYCOPHENOLATE MOFETIL [Suspect]
     Indication: SYSTEMIC LUPUS ERYTHEMATOSUS
     Route: 065
     Dates: start: 20000601
  2. MYCOPHENOLATE MOFETIL [Suspect]
     Dosage: DOSAGE INCREASED BUT NOT TOLERATED
     Route: 065
  3. MYCOPHENOLATE MOFETIL [Suspect]
     Route: 065
     Dates: end: 20080401
  4. AZATHIOPRINE [Suspect]
     Indication: SYSTEMIC LUPUS ERYTHEMATOSUS
     Route: 065
     Dates: start: 20020701, end: 20080401
  5. PREDNISOLONE [Concomitant]
     Indication: SYSTEMIC LUPUS ERYTHEMATOSUS
     Dosage: AZATHIOPRINE INTRODUCED AS STEROID SPARING AGENT
     Dates: start: 20020601, end: 20020701

REACTIONS (2)
  - DIARRHOEA [None]
  - EPSTEIN-BARR VIRUS ASSOCIATED LYMPHOPROLIFERATIVE DISORDER [None]
